FAERS Safety Report 8097317-9 (Version None)
Quarter: 2012Q1

REPORT INFORMATION
  Report Type: 
  Country: None (occurrence: None)
  Receive Date: 20120128
  Receipt Date: 20110624
  Transmission Date: 20120608
  Serious: Yes (Other)
  Sender: FDA-Public Use
  Company Number: US-ABBOTT-11P-163-0835398-00

PATIENT
  Age: 25 Year
  Sex: Female

DRUGS (7)
  1. HUMIRA [Suspect]
     Indication: PSORIATIC ARTHROPATHY
     Dates: start: 20081101
  2. HUMIRA [Suspect]
  3. LEVOXYL [Concomitant]
     Indication: THYROID DISORDER
  4. HUMIRA [Suspect]
     Dates: end: 20101101
  5. CYMBALTA [Concomitant]
     Indication: ANXIETY
  6. HUMIRA [Suspect]
     Indication: PSORIASIS
     Dates: start: 20110201
  7. LOESTRIN FE 1/20 [Concomitant]
     Indication: CONTRACEPTION
     Dosage: 24 - 1 TABLET DAILY

REACTIONS (2)
  - CERVICAL CONISATION [None]
  - PSORIATIC ARTHROPATHY [None]
